FAERS Safety Report 10271958 (Version 2)
Quarter: 2014Q3

REPORT INFORMATION
  Report Type: Spontaneous
  Country: CH (occurrence: CH)
  Receive Date: 20140702
  Receipt Date: 20140730
  Transmission Date: 20150326
  Serious: Yes (Life-Threatening, Hospitalization)
  Sender: FDA-Public Use
  Company Number: PHHY2014CH079466

PATIENT

DRUGS (2)
  1. LEUPRORELIN [Concomitant]
     Active Substance: LEUPROLIDE ACETATE
  2. ZOLEDRONATE [Suspect]
     Active Substance: ZOLEDRONIC ACID
     Indication: METASTASES TO BONE
     Dosage: 4 MG, UNK
     Route: 042

REACTIONS (8)
  - Hypocalcaemia [Recovered/Resolved]
  - Muscular weakness [Unknown]
  - Fatigue [Unknown]
  - Hyperparathyroidism [Unknown]
  - Confusional state [Unknown]
  - Fall [Unknown]
  - Dizziness [Unknown]
  - Paraesthesia [Unknown]
